FAERS Safety Report 7767056-X (Version None)
Quarter: 2011Q3

REPORT INFORMATION
  Report Type: 
  Country: None (occurrence: None)
  Receive Date: 20110922
  Receipt Date: 20101201
  Transmission Date: 20111222
  Serious: No
  Sender: FDA-Public Use
  Company Number: US-ASTRAZENECA-2010SE57005

PATIENT
  Sex: Male

DRUGS (1)
  1. SEROQUEL [Suspect]
     Indication: INSOMNIA
     Route: 048

REACTIONS (8)
  - CONFUSIONAL STATE [None]
  - DRUG INEFFECTIVE FOR UNAPPROVED INDICATION [None]
  - LOSS OF EMPLOYMENT [None]
  - INTENTIONAL DRUG MISUSE [None]
  - SPEECH DISORDER [None]
  - GAIT DISTURBANCE [None]
  - IMPAIRED DRIVING ABILITY [None]
  - INSOMNIA [None]
